FAERS Safety Report 25605333 (Version 1)
Quarter: 2025Q3

REPORT INFORMATION
  Report Type: Spontaneous
  Country: US (occurrence: US)
  Receive Date: 20250725
  Receipt Date: 20250725
  Transmission Date: 20251021
  Serious: Yes (Hospitalization)
  Sender: MYLAN
  Company Number: US-MYLANLABS-2025M1061321

PATIENT
  Age: 77 Year
  Sex: Male

DRUGS (2)
  1. IMATINIB [Suspect]
     Active Substance: IMATINIB
     Indication: Morphoea
  2. IMATINIB [Suspect]
     Active Substance: IMATINIB
     Indication: Scleroderma

REACTIONS (1)
  - Traumatic lung injury [Recovering/Resolving]
